FAERS Safety Report 5849557-4 (Version None)
Quarter: 2008Q3

REPORT INFORMATION
  Report Type: 
  Country: None (occurrence: None)
  Receive Date: 20080819
  Receipt Date: 20080808
  Transmission Date: 20090109
  Serious: Yes (Death, Life-Threatening, Other)
  Sender: FDA-Public Use
  Company Number: GB-JNJFOC-20080703497

PATIENT
  Sex: Female
  Weight: 80 kg

DRUGS (10)
  1. REMICADE [Suspect]
     Indication: RHEUMATOID ARTHRITIS
     Route: 042
  2. METHOTREXATE [Concomitant]
  3. CINNARIZINE [Concomitant]
  4. FOLIC ACID [Concomitant]
  5. FRUSEMIDE [Concomitant]
  6. INHALERS [Concomitant]
  7. NAPROXEN [Concomitant]
  8. NIZATIDINE [Concomitant]
  9. ACETAMINOPHEN [Concomitant]
  10. ZESTRIL [Concomitant]

REACTIONS (1)
  - MYOCARDIAL INFARCTION [None]
